FAERS Safety Report 6982998-0 (Version None)
Quarter: 2010Q3

REPORT INFORMATION
  Report Type: 
  Country: None (occurrence: None)
  Receive Date: 20100914
  Receipt Date: 20100511
  Transmission Date: 20110219
  Serious: No
  Sender: FDA-Public Use
  Company Number: US-PFIZER INC-2010060019

PATIENT
  Sex: Male
  Weight: 77 kg

DRUGS (10)
  1. LYRICA [Suspect]
     Indication: PAIN
     Dosage: 50 MG, 2X/DAY
     Route: 048
     Dates: start: 20100510
  2. HYDROCODONE [Concomitant]
     Dosage: UNK
  3. PULMICORT [Concomitant]
  4. AVALIDE [Concomitant]
     Dosage: UNK
  5. FINASTERIDE [Concomitant]
     Dosage: 5 MG, UNK
  6. TRAVATAN [Concomitant]
     Dosage: UNK
     Route: 047
  7. ALLEGRA [Concomitant]
     Dosage: 180 MG, UNK
  8. RANITIDINE [Concomitant]
     Dosage: 150 MG, UNK
  9. FLUTICASONE [Concomitant]
     Dosage: UNK
  10. RHINOCORT [Concomitant]
     Dosage: UNK

REACTIONS (2)
  - DIARRHOEA [None]
  - NAUSEA [None]
